FAERS Safety Report 4885359-3 (Version None)
Quarter: 2005Q4

REPORT INFORMATION
  Report Type: 
  Country: None (occurrence: None)
  Receive Date: 20051221
  Receipt Date: 20050902
  Transmission Date: 20060501
  Serious: No
  Sender: FDA-Public Use
  Company Number: US-YAMANOUCHI-YPA20050416

PATIENT
  Age: 84 Year
  Sex: Male
  Weight: 81.6475 kg

DRUGS (6)
  1. VESICARE [Suspect]
     Indication: POLLAKIURIA
     Dosage: 5 MG QD PO
     Route: 048
     Dates: start: 20050701
  2. VESICARE [Suspect]
     Indication: URINARY INCONTINENCE
     Dosage: 5 MG QD PO
     Route: 048
     Dates: start: 20050701
  3. ZOCOR [Concomitant]
  4. APRESOLINE [Concomitant]
  5. HYDROCHLOROTHIAZIDE [Concomitant]
  6. VITAMINS [Concomitant]

REACTIONS (1)
  - DRY MOUTH [None]
